FAERS Safety Report 25209714 (Version 1)
Quarter: 2025Q2

REPORT INFORMATION
  Report Type: Spontaneous
  Country: CA (occurrence: CA)
  Receive Date: 20250417
  Receipt Date: 20250417
  Transmission Date: 20250717
  Serious: Yes (Other)
  Sender: TEVA
  Company Number: CA-TEVA-VS-3322834

PATIENT
  Age: 32 Year
  Sex: Male
  Weight: 158 kg

DRUGS (1)
  1. METHYLPHENIDATE [Suspect]
     Active Substance: METHYLPHENIDATE
     Indication: Attention deficit hyperactivity disorder
     Dosage: DOSE FORM: NOT SPECIFIED
     Route: 048

REACTIONS (3)
  - Feeling jittery [Recovered/Resolved]
  - Disturbance in attention [Recovered/Resolved]
  - Anxiety [Recovered/Resolved]
